FAERS Safety Report 4490576-0 (Version None)
Quarter: 2004Q4

REPORT INFORMATION
  Report Type: 
  Country: None (occurrence: None)
  Receive Date: 20041102
  Receipt Date: 20041025
  Transmission Date: 20050328
  Serious: Yes (Death)
  Sender: FDA-Public Use
  Company Number: 200420641GDDC

PATIENT
  Age: 76 Year
  Sex: Female

DRUGS (4)
  1. ENOXAPARIN SODIUM [Suspect]
     Indication: ARTERIOGRAM CORONARY
     Route: 042
     Dates: start: 20040727, end: 20040727
  2. CLOPIDOGREL [Concomitant]
     Indication: ARTERIOGRAM CORONARY
     Route: 048
     Dates: start: 20040727, end: 20040727
  3. ASPIRIN [Concomitant]
     Route: 048
     Dates: start: 20040627, end: 20040727
  4. ENALAPRIL [Concomitant]
     Indication: CARDIAC FAILURE
     Route: 048
     Dates: start: 20040627, end: 20040727

REACTIONS (5)
  - CORONARY ARTERY THROMBOSIS [None]
  - MYOCARDIAL INFARCTION [None]
  - PROCEDURAL COMPLICATION [None]
  - THERAPY NON-RESPONDER [None]
  - VENTRICULAR FIBRILLATION [None]
